FAERS Safety Report 24370001 (Version 1)
Quarter: 2024Q3

REPORT INFORMATION
  Report Type: Report from Study
  Country: US (occurrence: US)
  Receive Date: 20240927
  Receipt Date: 20240927
  Transmission Date: 20241016
  Serious: No
  Sender: ROCHE
  Company Number: US-ROCHE-3533746

PATIENT
  Age: 81 Year
  Sex: Female
  Weight: 66.68 kg

DRUGS (2)
  1. LUCENTIS [Suspect]
     Active Substance: RANIBIZUMAB
     Indication: Neovascular age-related macular degeneration
     Dosage: ONE TIME IN THE RIGHT EYE, 1 WEEK LATER IN THE LEFT EYE ;ONGOING: NO
     Route: 031
     Dates: end: 202305
  2. LUCENTIS [Suspect]
     Active Substance: RANIBIZUMAB
     Indication: Choroidal neovascularisation
     Dosage: ONE WEEK IN THE RIGHT EYE, 1 WEEK LATER IN THE LEFT EYE ;ONGOING: NO
     Route: 031
     Dates: start: 202305

REACTIONS (3)
  - Bronchitis [Recovered/Resolved]
  - Amnesia [Unknown]
  - Off label use [Unknown]

NARRATIVE: CASE EVENT DATE: 20240201
